FAERS Safety Report 9975387 (Version 1)
Quarter: 2014Q1

REPORT INFORMATION
  Report Type: Report from Study
  Country: US (occurrence: US)
  Receive Date: 20140306
  Receipt Date: 20140306
  Transmission Date: 20141002
  Serious: No
  Sender: FDA-Public Use
  Company Number: US-ABBVIE-13P-163-1155559-00

PATIENT
  Sex: Male
  Weight: 120.31 kg

DRUGS (9)
  1. HUMIRA [Suspect]
     Indication: PSORIASIS
     Dates: start: 2007
  2. HUMIRA [Suspect]
     Indication: PRODUCT USED FOR UNKNOWN INDICATION
  3. ANDROGEL [Concomitant]
     Indication: BLOOD TESTOSTERONE DECREASED
  4. XANAX [Concomitant]
     Indication: ANXIETY
  5. OMEPRAZOLE [Concomitant]
     Indication: GASTROOESOPHAGEAL REFLUX DISEASE
  6. CRESTOR [Concomitant]
     Indication: BLOOD CHOLESTEROL
  7. DHEA [Concomitant]
     Indication: VITAMIN SUPPLEMENTATION
  8. CREATINE [Concomitant]
     Indication: VITAMIN SUPPLEMENTATION
  9. GLUCOSAMINE [Concomitant]
     Indication: VITAMIN SUPPLEMENTATION

REACTIONS (3)
  - Blood testosterone [Not Recovered/Not Resolved]
  - Sluggishness [Not Recovered/Not Resolved]
  - Nerve injury [Not Recovered/Not Resolved]
